FAERS Safety Report 5928662-8 (Version None)
Quarter: 2008Q4

REPORT INFORMATION
  Report Type: 
  Country: None (occurrence: None)
  Receive Date: 20081023
  Receipt Date: 20081021
  Transmission Date: 20090506
  Serious: Yes (Other)
  Sender: FDA-Public Use
  Company Number: JP-B.I. PHARMACEUTICALS,INC./RIDGEFIELD-2008-BP-14944NB

PATIENT
  Sex: Male

DRUGS (3)
  1. MICARDIS [Suspect]
     Indication: HYPERTENSION
     Dosage: 30MG
     Route: 048
     Dates: start: 20080825
  2. HALTHROW [Concomitant]
     Dosage: .2MG
     Route: 048
     Dates: start: 20050119, end: 20080911
  3. BESACOLIN [Concomitant]
     Dosage: 30MG
     Route: 048
     Dates: start: 20051107, end: 20080911

REACTIONS (1)
  - URINARY RETENTION [None]
